FAERS Safety Report 5238118-6 (Version None)
Quarter: 2007Q1

REPORT INFORMATION
  Report Type: 
  Country: None (occurrence: None)
  Receive Date: 20070215
  Receipt Date: 20070208
  Transmission Date: 20070707
  Serious: Yes (Hospitalization)
  Sender: FDA-Public Use
  Company Number: DEWYE156515JAN07

PATIENT
  Sex: Male
  Weight: 70 kg

DRUGS (7)
  1. VENLAFAXINE HCL [Suspect]
     Indication: DEPRESSION
     Dosage: 150 MG PER DAY
     Route: 048
     Dates: start: 20061204, end: 20061207
  2. VENLAFAXINE HCL [Suspect]
     Route: 048
     Dates: start: 20061208, end: 20061214
  3. VENLAFAXINE HCL [Suspect]
     Dosage: 150 MG PER DAY
     Route: 048
     Dates: start: 20061215
  4. VALPROIC ACID [Concomitant]
     Dosage: 600 MG PER DAY
     Route: 048
     Dates: start: 20061208, end: 20061214
  5. VALPROIC ACID [Concomitant]
     Dosage: 1500 MG PER DAY
     Route: 048
     Dates: start: 20061215
  6. TAVOR [Concomitant]
     Dosage: 1 MG PER DAY
     Route: 048
     Dates: start: 20061208
  7. MIRTAZAPINE [Concomitant]
     Route: 048
     Dates: start: 20061208

REACTIONS (1)
  - GRAND MAL CONVULSION [None]
